APPROVED DRUG PRODUCT: CAVERJECT
Active Ingredient: ALPROSTADIL
Strength: 0.04MG/VIAL
Dosage Form/Route: INJECTABLE;INJECTION
Application: N020379 | Product #004 | TE Code: AP
Applicant: PFIZER INC
Approved: May 19, 1997 | RLD: Yes | RS: Yes | Type: RX